FAERS Safety Report 7335792-5 (Version None)
Quarter: 2011Q1

REPORT INFORMATION
  Report Type: 
  Country: None (occurrence: None)
  Receive Date: 20110307
  Receipt Date: 20110225
  Transmission Date: 20110831
  Serious: Yes (Other)
  Sender: FDA-Public Use
  Company Number: US-JNJFOC-20110301577

PATIENT
  Sex: Male

DRUGS (2)
  1. REOPRO [Suspect]
     Indication: PRODUCT USED FOR UNKNOWN INDICATION
     Route: 042
  2. EFFIENT [Concomitant]

REACTIONS (1)
  - IN-STENT ARTERIAL RESTENOSIS [None]
